FAERS Safety Report 18559836 (Version 2)
Quarter: 2021Q1

REPORT INFORMATION
  Report Type: Report from Study
  Country: NL (occurrence: NL)
  Receive Date: 20201130
  Receipt Date: 20210108
  Transmission Date: 20210419
  Serious: Yes (Death, Hospitalization)
  Sender: FDA-Public Use
  Company Number: NL-SECURA BIO, INC.-2020NL007436

PATIENT

DRUGS (8)
  1. GRANISETRON [Concomitant]
     Active Substance: GRANISETRON
     Indication: NAUSEA
     Dosage: 2 MG, PRN
     Route: 065
     Dates: start: 20200513
  2. PANOBINOSTAT [Suspect]
     Active Substance: PANOBINOSTAT
     Dosage: UNK
     Route: 048
     Dates: start: 20201026, end: 20201102
  3. PARACETAMOL [Concomitant]
     Active Substance: ACETAMINOPHEN
     Indication: HEADACHE
     Dosage: 1000 MG, TID
     Route: 065
     Dates: start: 20201024, end: 20201102
  4. PANOBINOSTAT [Suspect]
     Active Substance: PANOBINOSTAT
     Indication: ANAPLASTIC ASTROCYTOMA
     Dosage: 50 MG, MWF
     Route: 048
     Dates: start: 20201021, end: 20201024
  5. DABRAFENIB;TRAMETINIB [Suspect]
     Active Substance: DABRAFENIB\TRAMETINIB
     Indication: ANAPLASTIC ASTROCYTOMA
     Dosage: UNK
     Route: 065
     Dates: start: 20201006, end: 20201102
  6. MIDAZOLAM. [Concomitant]
     Active Substance: MIDAZOLAM
     Indication: EPILEPSY
     Dosage: PRN (QD 4 DOSAGES)
     Route: 065
     Dates: start: 20200204
  7. LORAZEPAM. [Concomitant]
     Active Substance: LORAZEPAM
     Indication: EPILEPSY
     Dosage: 1 MG (BID)
     Route: 065
     Dates: start: 20200907
  8. GRANISETRON [Concomitant]
     Active Substance: GRANISETRON
     Indication: VOMITING

REACTIONS (1)
  - Neoplasm progression [Fatal]

NARRATIVE: CASE EVENT DATE: 20201102
